FAERS Safety Report 8984681 (Version 1)
Quarter: 2012Q4

REPORT INFORMATION
  Report Type: Spontaneous
  Country: US (occurrence: None)
  Receive Date: 20121218
  Receipt Date: 20121218
  Transmission Date: 20130627
  Serious: Yes (Hospitalization)
  Sender: FDA-Public Use
  Company Number: TPA2012A09735

PATIENT

DRUGS (1)
  1. EDARBYCLOR [Suspect]

REACTIONS (1)
  - Apparent death [None]
